FAERS Safety Report 8437878-0 (Version None)
Quarter: 2012Q2

REPORT INFORMATION
  Report Type: 
  Country: None (occurrence: None)
  Receive Date: 20120614
  Receipt Date: 20120522
  Transmission Date: 20120825
  Serious: No
  Sender: FDA-Public Use
  Company Number: US-AMGEN-USASP2012030411

PATIENT
  Age: 52 Year
  Sex: Female
  Weight: 62.585 kg

DRUGS (3)
  1. CALTRATE + D [Concomitant]
     Dosage: UNK UNK, QD
  2. PROLIA [Suspect]
     Indication: OSTEOPOROSIS POSTMENOPAUSAL
     Dosage: UNK UNK, Q6MO
     Route: 058
     Dates: start: 20120417
  3. VIACTIV [Concomitant]
     Route: 048

REACTIONS (5)
  - PARAESTHESIA ORAL [None]
  - PARAESTHESIA [None]
  - EYE PRURITUS [None]
  - HYPOAESTHESIA [None]
  - THIRST [None]
